FAERS Safety Report 20458775 (Version 1)
Quarter: 2022Q1

REPORT INFORMATION
  Report Type: Spontaneous
  Country: US (occurrence: US)
  Receive Date: 20220211
  Receipt Date: 20220211
  Transmission Date: 20220423
  Serious: No
  Sender: FDA-Public Use
  Company Number: US-AUROBINDO-AUR-APL-2021-026196

PATIENT
  Sex: Female

DRUGS (1)
  1. AMOXICILLIN AND CLAVULANATE POTASSIUM [Suspect]
     Active Substance: AMOXICILLIN\CLAVULANATE POTASSIUM
     Indication: Splinter
     Dosage: 10 MILLILITER, TWO TIMES A DAY
     Route: 065
     Dates: start: 20210531, end: 20210610

REACTIONS (2)
  - Malaise [Unknown]
  - Product container issue [Unknown]

NARRATIVE: CASE EVENT DATE: 20210610
